FAERS Safety Report 6417021-X (Version None)
Quarter: 2009Q4

REPORT INFORMATION
  Report Type: 
  Country: None (occurrence: None)
  Receive Date: 20091026
  Receipt Date: 20091014
  Transmission Date: 20100525
  Serious: Yes (Life-Threatening, Hospitalization)
  Sender: FDA-Public Use
  Company Number: 2007-02872

PATIENT
  Age: 58 Year
  Sex: Male
  Weight: 69 kg

DRUGS (16)
  1. VELCADE [Suspect]
     Indication: MULTIPLE MYELOMA
     Dosage: 2.2 MG, INTRAVENOUS
     Route: 042
     Dates: start: 20070703, end: 20070727
  2. DECADRON [Concomitant]
  3. TASMOLIN (BIPERIDEN) [Concomitant]
  4. LULLAN (PEROSPIRONE HYDROCHLORIDE) [Concomitant]
  5. PENFILL N (INSULIN HUMAN INJECTION, ISOPHANE) [Concomitant]
  6. LORAZEPAM [Concomitant]
  7. LITHIUM CARBONATE [Concomitant]
  8. NITRAZEPAM [Concomitant]
  9. RHYTHMY (RILMAZAFONE) [Concomitant]
  10. ALOSENN (TARAXACUM OFFICINALE, ACHILLEA, SENNA LEAF, RUBIA ROOT TINCTU [Concomitant]
  11. OMEPRAZOLE [Concomitant]
  12. SULFAMETHOXAZOLE AND TRIMETHOPRIM [Concomitant]
  13. ALLOPURINOL [Concomitant]
  14. MAGNESIUM OXIDE (MAGNESIUM OXIDE) [Concomitant]
  15. ITRACONAZOLE [Concomitant]
  16. FUNGUARD (NIKETHAMIDE, BENZYLPENICILLIN SODIUM, CINEOLE, GUAIFENESIN, [Concomitant]

REACTIONS (11)
  - ALANINE AMINOTRANSFERASE INCREASED [None]
  - ANAEMIA [None]
  - ASPARTATE AMINOTRANSFERASE INCREASED [None]
  - BLOOD ALBUMIN INCREASED [None]
  - C-REACTIVE PROTEIN INCREASED [None]
  - CONSTIPATION [None]
  - HYPERGLYCAEMIA [None]
  - PLATELET COUNT DECREASED [None]
  - PNEUMONIA HERPES VIRAL [None]
  - ROAD TRAFFIC ACCIDENT [None]
  - VARICELLA [None]
